FAERS Safety Report 4533557-0 (Version None)
Quarter: 2004Q4

REPORT INFORMATION
  Report Type: 
  Country: None (occurrence: None)
  Receive Date: 20041206
  Receipt Date: 20041001
  Transmission Date: 20050328
  Serious: No
  Sender: FDA-Public Use
  Company Number: USA041079923

PATIENT
  Age: 47 Year
  Sex: Female
  Weight: 86 kg

DRUGS (17)
  1. CYMBALTA [Suspect]
     Indication: DEPRESSION
     Dosage: 60 MG
     Dates: start: 20040924
  2. EFFEXOR [Concomitant]
  3. ACTOS [Concomitant]
  4. GLUCOTROL [Concomitant]
  5. LIPITOR [Concomitant]
  6. GLUCOPHAGE [Concomitant]
  7. FOSAMAX [Concomitant]
  8. AVAPRO [Concomitant]
  9. HYDROCHLOROTHIAZIDE [Concomitant]
  10. SYNTHROID [Concomitant]
  11. PROTONIX [Concomitant]
  12. PULMOCORTISON INY [Concomitant]
  13. CALCIUM AND VITAMIN D [Concomitant]
  14. FERROUS SULFATE TAB [Concomitant]
  15. VITAMIN E [Concomitant]
  16. VITAMIN C [Concomitant]
  17. ESTRADIOL [Concomitant]

REACTIONS (3)
  - INCREASED APPETITE [None]
  - NAUSEA [None]
  - WEIGHT INCREASED [None]
